FAERS Safety Report 5716210-7 (Version None)
Quarter: 2008Q2

REPORT INFORMATION
  Report Type: 
  Country: None (occurrence: None)
  Receive Date: 20080424
  Receipt Date: 20080421
  Transmission Date: 20081010
  Serious: Yes (Hospitalization)
  Sender: FDA-Public Use
  Company Number: FR-AVENTIS-200810710FR

PATIENT
  Age: 33 Year
  Sex: Female
  Weight: 49 kg

DRUGS (2)
  1. CLOMID [Suspect]
     Route: 048
  2. CLOMID [Suspect]
     Route: 048

REACTIONS (7)
  - DELIRIUM [None]
  - HALLUCINATION [None]
  - HEADACHE [None]
  - HOT FLUSH [None]
  - MANIA [None]
  - TREMOR [None]
  - VISUAL DISTURBANCE [None]
